FAERS Safety Report 24422354 (Version 1)
Quarter: 2024Q4

REPORT INFORMATION
  Report Type: Report from Study
  Country: US (occurrence: US)
  Receive Date: 20241010
  Receipt Date: 20241010
  Transmission Date: 20250115
  Serious: Yes (Hospitalization)
  Sender: JOHNSON AND JOHNSON
  Company Number: US-JNJFOC-20240950170

PATIENT
  Age: 47 Year
  Sex: Female

DRUGS (5)
  1. EPOPROSTENOL SODIUM [Suspect]
     Active Substance: EPOPROSTENOL SODIUM
     Indication: Pulmonary arterial hypertension
     Route: 042
     Dates: start: 202309
  2. EPOPROSTENOL SODIUM [Suspect]
     Active Substance: EPOPROSTENOL SODIUM
     Route: 042
     Dates: start: 202309
  3. OPSUMIT [Concomitant]
     Active Substance: MACITENTAN
  4. TADALAFIL [Concomitant]
     Active Substance: TADALAFIL
  5. SOTATERCEPT [Concomitant]
     Active Substance: SOTATERCEPT

REACTIONS (3)
  - Device occlusion [Unknown]
  - Drug delivery system malfunction [Unknown]
  - Product administration interrupted [Unknown]

NARRATIVE: CASE EVENT DATE: 20240914
